FAERS Safety Report 9299894 (Version 1)
Quarter: 2013Q1

REPORT INFORMATION
  Report Type: Spontaneous
  Country: US (occurrence: US)
  Receive Date: 20130107
  Receipt Date: 20130107
  Transmission Date: 20140127
  Serious: Yes (Other)
  Sender: FDA-Public Use
  Company Number: PHEH2012US018614

PATIENT
  Age: 48 Year
  Sex: Male
  Weight: 74.8 kg

DRUGS (1)
  1. GILENYA [Suspect]
     Indication: MULTIPLE SCLEROSIS
     Route: 048
     Dates: start: 20120920

REACTIONS (4)
  - Heart rate decreased [None]
  - Palpitations [None]
  - Feeling jittery [None]
  - Asthenia [None]
